FAERS Safety Report 9105595 (Version 1)
Quarter: 2013Q1

REPORT INFORMATION
  Report Type: Spontaneous
  Country: US (occurrence: US)
  Receive Date: 20130221
  Receipt Date: 20130221
  Transmission Date: 20140127
  Serious: Yes (Hospitalization, Other)
  Sender: FDA-Public Use
  Company Number: US-TEVA-337146USA

PATIENT
  Age: 40 Year
  Sex: Male

DRUGS (2)
  1. TREANDA [Suspect]
     Route: 042
  2. RITUXIMAB [Concomitant]

REACTIONS (3)
  - Anaemia [Unknown]
  - Neutropenia [Unknown]
  - Pyrexia [Unknown]
